FAERS Safety Report 5591421-2 (Version None)
Quarter: 2008Q1

REPORT INFORMATION
  Report Type: 
  Country: None (occurrence: None)
  Receive Date: 20080111
  Receipt Date: 20080111
  Transmission Date: 20080703
  Serious: Yes (Life-Threatening)
  Sender: FDA-Public Use
  Company Number: None

PATIENT
  Age: 61 Year
  Sex: Female
  Weight: 61.2356 kg

DRUGS (2)
  1. AMBIEN [Suspect]
     Indication: INSOMNIA
     Dosage: 10 MG BEDTIME ORAL
     Route: 048
     Dates: start: 20051001, end: 20070401
  2. EFFEXOR [Suspect]
     Indication: DEPRESSION
     Dosage: 450 MG DAILY ORAL
     Route: 048
     Dates: start: 20020101

REACTIONS (7)
  - ABNORMAL BEHAVIOUR [None]
  - AMNESIA [None]
  - DYSPNOEA EXERTIONAL [None]
  - FATIGUE [None]
  - LOSS OF EMPLOYMENT [None]
  - ROAD TRAFFIC ACCIDENT [None]
  - SOMNOLENCE [None]
